FAERS Safety Report 9781360 (Version 3)
Quarter: 2014Q1

REPORT INFORMATION
  Report Type: Spontaneous
  Country: US (occurrence: US)
  Receive Date: 20131224
  Receipt Date: 20140123
  Transmission Date: 20141002
  Serious: Yes (Hospitalization)
  Sender: FDA-Public Use
  Company Number: US-GILEAD-2013-0090520

PATIENT
  Age: 75 Year
  Sex: Female

DRUGS (7)
  1. LETAIRIS [Suspect]
     Indication: PULMONARY HYPERTENSION
     Dosage: 10 MG, QD
     Route: 048
     Dates: start: 20130905
  2. LETAIRIS [Suspect]
     Indication: CARDIOVASCULAR DISORDER
  3. REVATIO [Concomitant]
  4. METOPROLOL [Concomitant]
  5. SYNTHROID [Concomitant]
  6. HYDRALAZINE [Concomitant]
  7. AMIODARONE [Concomitant]

REACTIONS (1)
  - Abdominal distension [Recovered/Resolved]
